FAERS Safety Report 22241581 (Version 1)
Quarter: 2023Q2

REPORT INFORMATION
  Report Type: Spontaneous
  Country: US (occurrence: US)
  Receive Date: 20230421
  Receipt Date: 20230421
  Transmission Date: 20230721
  Serious: Yes (Other)
  Sender: FDA-Public Use
  Company Number: US-002147023-NVSC2023US086170

PATIENT
  Age: 39 Year
  Sex: Female

DRUGS (3)
  1. CARBOPLATIN [Suspect]
     Active Substance: CARBOPLATIN
     Indication: Cervix carcinoma stage IV
     Dosage: UNK, CYCLIC (SYSTEMIC, TWO CYCLES)
     Route: 065
  2. PACLITAXEL [Suspect]
     Active Substance: PACLITAXEL
     Indication: Cervix carcinoma stage IV
     Dosage: UNK, CYCLIC, 50 PERCENT DOSE (SYSTEMIC, THREE CYCLES)
     Route: 065
  3. BEVACIZUMAB [Suspect]
     Active Substance: BEVACIZUMAB
     Indication: Cervix carcinoma stage IV
     Dosage: UNK, CYCLIC, 50 PERCENT DOSE (SYSTEMIC, THREE CYCLES)
     Route: 065

REACTIONS (3)
  - Bone marrow failure [Unknown]
  - Nephropathy toxic [Unknown]
  - Product use in unapproved indication [Unknown]
